FAERS Safety Report 20999661 (Version 1)
Quarter: 2022Q2

REPORT INFORMATION
  Report Type: Spontaneous
  Country: US (occurrence: None)
  Receive Date: 20220623
  Receipt Date: 20220623
  Transmission Date: 20220721
  Serious: No
  Sender: FDA-Public Use
  Company Number: None

PATIENT
  Age: 31 Year
  Sex: Female
  Weight: 83.91 kg

DRUGS (3)
  1. KYLEENA [Suspect]
     Active Substance: LEVONORGESTREL
  2. UNSPECIFIED INGREDIENT [Suspect]
     Active Substance: UNSPECIFIED INGREDIENT
  3. VYVANSE [Concomitant]
     Active Substance: LISDEXAMFETAMINE DIMESYLATE

REACTIONS (9)
  - Asthenia [None]
  - Anxiety [None]
  - Tremor [None]
  - Panic attack [None]
  - Intrusive thoughts [None]
  - Anger [None]
  - Irritability [None]
  - Suicidal behaviour [None]
  - Depression [None]

NARRATIVE: CASE EVENT DATE: 20220606
